FAERS Safety Report 20469986 (Version 3)
Quarter: 2022Q2

REPORT INFORMATION
  Report Type: Spontaneous
  Country: JP (occurrence: JP)
  Receive Date: 20220214
  Receipt Date: 20220518
  Transmission Date: 20220721
  Serious: Yes (Hospitalization, Other)
  Sender: FDA-Public Use
  Company Number: JP-BAYER-2022A022215

PATIENT
  Age: 80 Year
  Sex: Male

DRUGS (6)
  1. NUBEQA [Suspect]
     Active Substance: DAROLUTAMIDE
     Indication: Hormone-refractory prostate cancer
     Dosage: UNK
     Dates: start: 20220107, end: 20220208
  2. TAMSULOSIN [Concomitant]
     Active Substance: TAMSULOSIN
  3. LOXOPROFEN SODIUM [Concomitant]
     Active Substance: LOXOPROFEN SODIUM
  4. ETIZOLAM [Concomitant]
     Active Substance: ETIZOLAM
  5. DONEPEZIL [Concomitant]
     Active Substance: DONEPEZIL
  6. MINODRONE [Concomitant]

REACTIONS (5)
  - Metastases to bone [Unknown]
  - Spinal compression fracture [Recovering/Resolving]
  - Oedema [Recovered/Resolved]
  - Back pain [Recovering/Resolving]
  - Mobility decreased [Recovering/Resolving]

NARRATIVE: CASE EVENT DATE: 20220207
